FAERS Safety Report 12289288 (Version 1)
Quarter: 2016Q2

REPORT INFORMATION
  Report Type: Spontaneous
  Country: US (occurrence: None)
  Receive Date: 20160420
  Receipt Date: 20160420
  Transmission Date: 20160815
  Serious: Yes (Disabling, Other)
  Sender: FDA-Public Use
  Company Number: None

PATIENT
  Age: 46 Year
  Sex: Female
  Weight: 65.77 kg

DRUGS (5)
  1. CALCIUM [Concomitant]
     Active Substance: CALCIUM
  2. VITAMIN B12 [Concomitant]
     Active Substance: CYANOCOBALAMIN
  3. MULTI-VITAMIN [Concomitant]
     Active Substance: .ALPHA.-TOCOPHEROL ACETATE, DL-\ASCORBIC ACID\CYANOCOBALAMIN\FLUORIDE ION\FOLIC ACID\NIACIN\PYRIDOXINE\RIBOFLAVIN\THIAMINE\VITAMIN A\VITAMIN D
  4. LOVASTATIN 40MG, 40 MG [Suspect]
     Active Substance: LOVASTATIN
     Indication: BLOOD CHOLESTEROL INCREASED
     Route: 048
     Dates: start: 20140101, end: 20160201
  5. LORAZAPAM [Concomitant]
     Active Substance: LORAZEPAM

REACTIONS (9)
  - Malaise [None]
  - Arthralgia [None]
  - Fatigue [None]
  - Raynaud^s phenomenon [None]
  - Amnesia [None]
  - No therapeutic response [None]
  - Autoimmune disorder [None]
  - Pain [None]
  - Impaired work ability [None]

NARRATIVE: CASE EVENT DATE: 20140101
